FAERS Safety Report 5668373-X (Version None)
Quarter: 2008Q1

REPORT INFORMATION
  Report Type: 
  Country: None (occurrence: None)
  Receive Date: 20080315
  Receipt Date: 20080221
  Transmission Date: 20080703
  Serious: No
  Sender: FDA-Public Use
  Company Number: US-ABBOTT-08P-163-0439687-00

PATIENT
  Sex: Female
  Weight: 111.68 kg

DRUGS (2)
  1. HUMIRA [Suspect]
     Indication: ANKYLOSING SPONDYLITIS
     Route: 058
     Dates: start: 20071101, end: 20080206
  2. HUMIRA [Suspect]
     Route: 058
     Dates: start: 20080206

REACTIONS (1)
  - BACK PAIN [None]
